FAERS Safety Report 15640143 (Version 1)
Quarter: 2018Q4

REPORT INFORMATION
  Report Type: Spontaneous
  Country: AU (occurrence: AU)
  Receive Date: 20181120
  Receipt Date: 20181120
  Transmission Date: 20190205
  Serious: Yes (Other)
  Sender: FDA-Public Use
  Company Number: AU-SA-2018SA314510

PATIENT
  Age: 70 Year
  Sex: Male

DRUGS (2)
  1. DOCETAXEL. [Suspect]
     Active Substance: DOCETAXEL
  2. CABAZITAXEL [Suspect]
     Active Substance: CABAZITAXEL

REACTIONS (1)
  - Erythema multiforme [Unknown]
